FAERS Safety Report 12156326 (Version 2)
Quarter: 2016Q1

REPORT INFORMATION
  Report Type: Spontaneous
  Country: US (occurrence: US)
  Receive Date: 20160307
  Receipt Date: 20160318
  Transmission Date: 20160526
  Serious: Yes (Hospitalization)
  Sender: FDA-Public Use
  Company Number: US-ELI_LILLY_AND_COMPANY-US201602009457

PATIENT
  Age: 47 Year
  Sex: Male

DRUGS (2)
  1. ADCIRCA [Suspect]
     Active Substance: TADALAFIL
     Indication: PRODUCT USED FOR UNKNOWN INDICATION
     Dosage: UNK, UNKNOWN
     Route: 065
  2. AMBRISENTAN [Suspect]
     Active Substance: AMBRISENTAN
     Indication: PRODUCT USED FOR UNKNOWN INDICATION
     Dosage: 10 MG, QD
     Route: 065
     Dates: start: 20151216

REACTIONS (18)
  - Chest pain [Unknown]
  - Insomnia [Unknown]
  - Blood potassium decreased [Unknown]
  - Nasopharyngitis [Unknown]
  - Vomiting [Unknown]
  - Dizziness [Unknown]
  - Flushing [Unknown]
  - Headache [Unknown]
  - Vision blurred [Unknown]
  - Nasal congestion [Unknown]
  - Pain in extremity [Unknown]
  - Palpitations [Unknown]
  - Tinnitus [Unknown]
  - Chest pain [Unknown]
  - Oedema [Unknown]
  - Peripheral swelling [Unknown]
  - Night sweats [Unknown]
  - Hernia [Unknown]

NARRATIVE: CASE EVENT DATE: 201501
